FAERS Safety Report 13573203 (Version 1)
Quarter: 2017Q2

REPORT INFORMATION
  Report Type: Spontaneous
  Country: US (occurrence: US)
  Receive Date: 20170523
  Receipt Date: 20170523
  Transmission Date: 20170830
  Serious: No
  Sender: FDA-Public Use
  Company Number: US-BAYER-2017-096273

PATIENT
  Age: 78 Year
  Sex: Female
  Weight: 81.18 kg

DRUGS (3)
  1. CLARITIN [Suspect]
     Active Substance: LORATADINE
     Indication: HYPERSENSITIVITY
     Dosage: 3-5 TIMES A DAY, PRN
     Route: 048
     Dates: start: 2010
  2. CLARITIN [Suspect]
     Active Substance: LORATADINE
     Indication: VIRAL UPPER RESPIRATORY TRACT INFECTION
  3. CLARITIN [Suspect]
     Active Substance: LORATADINE
     Indication: SEASONAL ALLERGY

REACTIONS (4)
  - Drug ineffective [Unknown]
  - Night sweats [Unknown]
  - Extra dose administered [Unknown]
  - Chills [Unknown]

NARRATIVE: CASE EVENT DATE: 20170514
